FAERS Safety Report 14819297 (Version 1)
Quarter: 2018Q2

REPORT INFORMATION
  Report Type: Spontaneous
  Country: DE (occurrence: DE)
  Receive Date: 20180427
  Receipt Date: 20180427
  Transmission Date: 20180711
  Serious: Yes (Hospitalization)
  Sender: FDA-Public Use
  Company Number: DE-BAYER-2018-075287

PATIENT
  Age: 65 Year
  Sex: Male

DRUGS (14)
  1. TRAMAL LONG [Concomitant]
     Active Substance: TRAMADOL
     Dosage: UNK, PRN
  2. SPIRIVA [Concomitant]
     Active Substance: TIOTROPIUM BROMIDE MONOHYDRATE
     Dosage: 18 ?G, QD
  3. TORASEMID [Concomitant]
     Active Substance: TORSEMIDE
     Dosage: 10 MG, QD
  4. ACETYLSALICYLIC ACID({=100 MG) [Suspect]
     Active Substance: ASPIRIN
     Dosage: 100 MG, QD
  5. CIPRALEX [Suspect]
     Active Substance: ESCITALOPRAM OXALATE
     Dosage: 10 MG, QD
  6. RAMIPRIL. [Concomitant]
     Active Substance: RAMIPRIL
     Dosage: 25 MG, QD
  7. EUTHYROX [Concomitant]
     Active Substance: LEVOTHYROXINE SODIUM
     Dosage: 50 ?G, QD
  8. ALLOPURINOL. [Concomitant]
     Active Substance: ALLOPURINOL
     Dosage: 0.5 DF, QD
  9. ALNA [Concomitant]
     Active Substance: TAMSULOSIN HYDROCHLORIDE
     Dosage: 4 MG, QD
  10. METOPROLOL. [Concomitant]
     Active Substance: METOPROLOL
     Dosage: 47.5 MG, BID
  11. SIMVASTATIN. [Concomitant]
     Active Substance: SIMVASTATIN
     Dosage: 20 MG, QD
  12. PANTOPRAZOLE [Concomitant]
     Active Substance: PANTOPRAZOLE
     Dosage: 40 MG, QD
  13. METAMIZOL [Concomitant]
     Active Substance: METAMIZOLE SODIUM
     Dosage: 15 GTT, TID
  14. SYMBICORT [Concomitant]
     Active Substance: BUDESONIDE\FORMOTEROL FUMARATE DIHYDRATE

REACTIONS (5)
  - Abdominal pain lower [Unknown]
  - Dizziness [Unknown]
  - Dyspnoea [Unknown]
  - Haematochezia [Unknown]
  - Pain [Unknown]
